FAERS Safety Report 4899995-1 (Version None)
Quarter: 2006Q1

REPORT INFORMATION
  Report Type: 
  Country: None (occurrence: None)
  Receive Date: 20060201
  Receipt Date: 20060117
  Transmission Date: 20060701
  Serious: Yes (Hospitalization)
  Sender: FDA-Public Use
  Company Number: DEU-2005-0001891

PATIENT
  Age: 86 Year
  Sex: Female
  Weight: 59.2 kg

DRUGS (6)
  1. OXYCODONE HCL/NALOXONE HCL CR [Suspect]
     Indication: BACK PAIN
     Dosage: BID, ORAL
     Route: 048
     Dates: start: 20051026
  2. ARELIX ACE (RAMIPRIL, PIRETANIDE) [Concomitant]
  3. NORVASC [Concomitant]
  4. CORINFAR [Concomitant]
  5. DIGITOXIN TAB [Concomitant]
  6. ANTIHYPERTENSIVES [Concomitant]

REACTIONS (4)
  - CONDITION AGGRAVATED [None]
  - DIZZINESS [None]
  - HYPERTENSION [None]
  - NAUSEA [None]
